FAERS Safety Report 25721441 (Version 1)
Quarter: 2025Q3

REPORT INFORMATION
  Report Type: Spontaneous
  Country: EU (occurrence: EU)
  Receive Date: 20250825
  Receipt Date: 20250825
  Transmission Date: 20251021
  Serious: Yes (Other)
  Sender: MYLAN
  Company Number: None

PATIENT
  Age: 71 Year
  Sex: Female

DRUGS (4)
  1. KETOPROFEN [Suspect]
     Active Substance: KETOPROFEN
     Indication: Product used for unknown indication
  2. KETOPROFEN [Suspect]
     Active Substance: KETOPROFEN
     Route: 065
  3. KETOPROFEN [Suspect]
     Active Substance: KETOPROFEN
     Route: 065
  4. KETOPROFEN [Suspect]
     Active Substance: KETOPROFEN

REACTIONS (2)
  - Angioedema [Recovered/Resolved]
  - Urticaria [Recovered/Resolved]
